FAERS Safety Report 22264551 (Version 1)
Quarter: 2023Q2

REPORT INFORMATION
  Report Type: Spontaneous
  Country: US (occurrence: None)
  Receive Date: 20230427
  Receipt Date: 20230427
  Transmission Date: 20230722
  Serious: Yes (Hospitalization, Disabling)
  Sender: FDA-Public Use
  Company Number: None

PATIENT
  Age: 56 Year
  Sex: Male
  Weight: 70.6 kg

DRUGS (1)
  1. WARFARIN [Suspect]
     Active Substance: WARFARIN
     Indication: Heart valve replacement
     Dosage: FREQUENCY : DAILY;?
     Route: 048
     Dates: start: 20210731, end: 20230316

REACTIONS (6)
  - Malignant middle cerebral artery syndrome [None]
  - Subdural haematoma [None]
  - Agitation [None]
  - Aphasia [None]
  - Mood altered [None]
  - Intraventricular haemorrhage [None]

NARRATIVE: CASE EVENT DATE: 20230316
